FAERS Safety Report 9699638 (Version 2)
Quarter: 2013Q4

REPORT INFORMATION
  Report Type: Spontaneous
  Country: US (occurrence: US)
  Receive Date: 20131120
  Receipt Date: 20131212
  Transmission Date: 20140711
  Serious: No
  Sender: FDA-Public Use
  Company Number: US-TEVA-372695USA

PATIENT
  Age: 29 Year
  Sex: Female
  Weight: 73.55 kg

DRUGS (7)
  1. PARAGARD 380A [Suspect]
     Indication: CONTRACEPTION
     Route: 015
     Dates: start: 20121106, end: 20130109
  2. PARAGARD 380A [Suspect]
     Route: 015
     Dates: start: 20130109, end: 20130109
  3. PARAGARD 380A [Suspect]
     Route: 015
     Dates: start: 20130109, end: 20130208
  4. PARAGARD 380A [Suspect]
     Route: 015
     Dates: start: 20130208
  5. SYNTHROID [Concomitant]
  6. PRENATAL VITAMINS [Concomitant]
  7. VITAMIN D [Concomitant]

REACTIONS (1)
  - Device expulsion [Not Recovered/Not Resolved]
